FAERS Safety Report 6066017-9 (Version None)
Quarter: 2009Q1

REPORT INFORMATION
  Report Type: 
  Country: None (occurrence: None)
  Receive Date: 20090205
  Receipt Date: 20090128
  Transmission Date: 20090719
  Serious: Yes (Hospitalization, Other)
  Sender: FDA-Public Use
  Company Number: US-AMGEN-QUU330760

PATIENT
  Sex: Female

DRUGS (7)
  1. ENBREL [Suspect]
     Indication: RHEUMATOID ARTHRITIS
  2. REMICADE [Concomitant]
  3. HUMIRA [Concomitant]
  4. SOLU-MEDROL [Concomitant]
  5. XANAX [Concomitant]
  6. REGLAN [Concomitant]
  7. ARAVA [Concomitant]

REACTIONS (5)
  - ANXIETY [None]
  - DRUG INEFFECTIVE [None]
  - GASTRIC PH DECREASED [None]
  - HAEMORRHAGE [None]
  - RHEUMATOID ARTHRITIS [None]
